FAERS Safety Report 4784718-7 (Version None)
Quarter: 2005Q3

REPORT INFORMATION
  Report Type: 
  Country: None (occurrence: None)
  Receive Date: 20050930
  Receipt Date: 20050909
  Transmission Date: 20060218
  Serious: Yes (Disabling)
  Sender: FDA-Public Use
  Company Number: GB-ROCHE-417134

PATIENT
  Age: 40 Year
  Sex: Female

DRUGS (2)
  1. ROACCUTANE [Suspect]
     Route: 048
     Dates: start: 20050510, end: 20050905
  2. OXYTETRACYCLINE [Concomitant]
     Indication: ACNE
     Route: 048
     Dates: start: 19950515, end: 20050515

REACTIONS (4)
  - AMNESIA [None]
  - CONFUSIONAL STATE [None]
  - FATIGUE [None]
  - MEMORY IMPAIRMENT [None]
